FAERS Safety Report 4914734-3 (Version None)
Quarter: 2006Q1

REPORT INFORMATION
  Report Type: 
  Country: None (occurrence: None)
  Receive Date: 20060216
  Receipt Date: 20050930
  Transmission Date: 20060701
  Serious: Yes (Hospitalization, Other)
  Sender: FDA-Public Use
  Company Number: US-MERCK-0510USA00927

PATIENT
  Age: 62 Year
  Sex: Male
  Weight: 65 kg

DRUGS (1)
  1. VIOXX [Suspect]
     Route: 048

REACTIONS (14)
  - ANGINA PECTORIS [None]
  - ARRHYTHMIA [None]
  - ARTHRALGIA [None]
  - CEREBROVASCULAR ACCIDENT [None]
  - CHEST PAIN [None]
  - CORONARY ARTERY DISEASE [None]
  - DIABETES MELLITUS NON-INSULIN-DEPENDENT [None]
  - HYPERTENSION [None]
  - MYOCARDIAL INFARCTION [None]
  - ORGAN FAILURE [None]
  - PERSONALITY DISORDER [None]
  - PULMONARY EMBOLISM [None]
  - SPINAL COLUMN STENOSIS [None]
  - SPINAL CORD INJURY [None]
